FAERS Safety Report 12168829 (Version 1)
Quarter: 2016Q1

REPORT INFORMATION
  Report Type: Spontaneous
  Country: FR (occurrence: FR)
  Receive Date: 20160310
  Receipt Date: 20160310
  Transmission Date: 20160526
  Serious: Yes (Hospitalization, Congenital Anomaly)
  Sender: FDA-Public Use
  Company Number: FR-PFIZER INC-2016140882

PATIENT
  Sex: Female
  Weight: 2.49 kg

DRUGS (6)
  1. ALPRAZOLAM. [Suspect]
     Active Substance: ALPRAZOLAM
     Dosage: 5 MG, DAILY
     Route: 064
  2. DOLIPRANE [Suspect]
     Active Substance: ACETAMINOPHEN
     Indication: UTERINE CONTRACTIONS DURING PREGNANCY
     Dosage: UNK, AS NEEDED
     Route: 064
     Dates: start: 20120803, end: 20121208
  3. MAGNE B6 [Suspect]
     Active Substance: MAGNESIUM\PYRIDOXINE
     Dosage: UNK
     Route: 064
     Dates: start: 20120831, end: 20121208
  4. SPASFON [Suspect]
     Active Substance: PHLOROGLUCINOL
     Indication: UTERINE CONTRACTIONS DURING PREGNANCY
     Dosage: UNK, AS NEEDED
     Route: 064
     Dates: start: 20120803, end: 20121208
  5. SOLUPRED [Concomitant]
     Active Substance: PREDNISOLONE
     Indication: COUGH
     Dosage: UNK
  6. EFFEXOR [Suspect]
     Active Substance: VENLAFAXINE HYDROCHLORIDE
     Dosage: 75 MG, 1X/DAY
     Route: 064

REACTIONS (2)
  - Maternal exposure during pregnancy [Not Recovered/Not Resolved]
  - Cystic lymphangioma [Not Recovered/Not Resolved]
